FAERS Safety Report 11411163 (Version 1)
Quarter: 2015Q3

REPORT INFORMATION
  Report Type: Spontaneous
  Country: US (occurrence: US)
  Receive Date: 20150821
  Receipt Date: 20150821
  Transmission Date: 20151125
  Serious: No
  Sender: FDA-Public Use
  Company Number: US-ELI_LILLY_AND_COMPANY-US201004002069

PATIENT
  Sex: Female

DRUGS (3)
  1. HUMULIN 70/30 [Suspect]
     Active Substance: INSULIN HUMAN
     Indication: DIABETES MELLITUS
  2. BABY ASPIRIN [Concomitant]
     Active Substance: ASPIRIN
  3. HUMULIN 70/30 [Suspect]
     Active Substance: INSULIN HUMAN

REACTIONS (3)
  - Intercepted drug dispensing error [Recovered/Resolved]
  - Dysphonia [Recovering/Resolving]
  - Nasopharyngitis [Unknown]

NARRATIVE: CASE EVENT DATE: 2010
